FAERS Safety Report 5016909-4 (Version None)
Quarter: 2006Q2

REPORT INFORMATION
  Report Type: 
  Country: None (occurrence: None)
  Receive Date: 20060526
  Receipt Date: 20060419
  Transmission Date: 20061013
  Serious: Yes (Other)
  Sender: FDA-Public Use
  Company Number: 6022749

PATIENT
  Age: 15 Year
  Sex: Female

DRUGS (2)
  1. CONCOR (BISPOPROLOL, FUMARATE) [Suspect]
     Dosage: 2,500 MG , 1 IN 1 D, ORAL
     Route: 048
     Dates: start: 20050531, end: 20050608
  2. ATHYRAZOL (THIAMAZOLE) [Suspect]
     Indication: HYPERTHYROIDISM
     Dosage: 60,000 MG ORAL(60 MG, 1 IN 1 D)
     Route: 048
     Dates: start: 20050531, end: 20050608

REACTIONS (3)
  - PRURITUS [None]
  - PRURITUS GENERALISED [None]
  - URTICARIA [None]
